FAERS Safety Report 14918150 (Version 1)
Quarter: 2018Q2

REPORT INFORMATION
  Report Type: Spontaneous
  Country: US (occurrence: US)
  Receive Date: 20180502
  Receipt Date: 20180502
  Transmission Date: 20180711
  Serious: Yes (Life-Threatening, Hospitalization, Disabling, Other)
  Sender: FDA-Public Use
  Company Number: None

PATIENT
  Age: 16 Year
  Sex: Female
  Weight: 49.5 kg

DRUGS (1)
  1. LEXAPRO [Suspect]
     Active Substance: ESCITALOPRAM OXALATE
     Indication: PRODUCT USED FOR UNKNOWN INDICATION
     Dosage: ?          QUANTITY:30 TABLET(S);?
     Route: 048
     Dates: start: 20171010

REACTIONS (9)
  - Suicidal ideation [None]
  - Poverty of thought content [None]
  - Product prescribing issue [None]
  - Hypotension [None]
  - Head injury [None]
  - Upper limb fracture [None]
  - Fall [None]
  - School refusal [None]
  - Intentional overdose [None]

NARRATIVE: CASE EVENT DATE: 20180424
